FAERS Safety Report 23505939 (Version 1)
Quarter: 2024Q1

REPORT INFORMATION
  Report Type: Spontaneous
  Country: US (occurrence: US)
  Receive Date: 20240209
  Receipt Date: 20240209
  Transmission Date: 20240409
  Serious: No
  Sender: FDA-Public Use
  Company Number: US-ELI_LILLY_AND_COMPANY-US202402004428

PATIENT
  Age: 87 Year
  Sex: Female

DRUGS (2)
  1. HUMULIN N [Suspect]
     Active Substance: INSULIN HUMAN
     Indication: Type 2 diabetes mellitus
     Dosage: UNK UNK, UNKNOWN
     Route: 065
  2. TRADJENTA [Concomitant]
     Active Substance: LINAGLIPTIN
     Indication: Type 2 diabetes mellitus

REACTIONS (1)
  - Cataract [Not Recovered/Not Resolved]
